FAERS Safety Report 8061023-7 (Version None)
Quarter: 2012Q1

REPORT INFORMATION
  Report Type: 
  Country: None (occurrence: None)
  Receive Date: 20120120
  Receipt Date: 20110506
  Transmission Date: 20120608
  Serious: No
  Sender: FDA-Public Use
  Company Number: US-ALLERGAN-1106265US

PATIENT
  Age: 62 Year
  Sex: Female

DRUGS (1)
  1. RESTASIS [Suspect]
     Indication: DRY EYE
     Dosage: 2 GTT, BID
     Route: 047
     Dates: start: 20110306, end: 20110504

REACTIONS (9)
  - LACRIMATION INCREASED [None]
  - IRRITABILITY [None]
  - FOREIGN BODY SENSATION IN EYES [None]
  - VISION BLURRED [None]
  - RHINORRHOEA [None]
  - HEADACHE [None]
  - PAIN IN JAW [None]
  - DIZZINESS [None]
  - FEELING ABNORMAL [None]
